FAERS Safety Report 9120983 (Version 1)
Quarter: 2013Q1

REPORT INFORMATION
  Report Type: Report from Study
  Country: FR (occurrence: FR)
  Receive Date: 20130226
  Receipt Date: 20130226
  Transmission Date: 20140127
  Serious: Yes (Hospitalization)
  Sender: FDA-Public Use
  Company Number: FR-GLAXOSMITHKLINE-B0684685A

PATIENT
  Age: 63 Year
  Sex: Male
  Weight: 95 kg

DRUGS (8)
  1. ARZERRA [Suspect]
     Indication: CHRONIC LYMPHOCYTIC LEUKAEMIA REFRACTORY
     Route: 042
     Dates: start: 20100215, end: 20100820
  2. ZELITREX [Concomitant]
     Route: 065
  3. BACTRIM [Concomitant]
     Route: 065
  4. XANAX [Concomitant]
     Route: 065
  5. PROZAC [Concomitant]
     Route: 065
  6. TAHOR [Concomitant]
     Route: 065
  7. GAMMAGLOBULIN [Concomitant]
     Indication: HYPOGAMMAGLOBULINAEMIA
     Route: 065
  8. INSULIN [Concomitant]
     Indication: DIABETES MELLITUS
     Route: 065

REACTIONS (6)
  - Diarrhoea [Not Recovered/Not Resolved]
  - Weight decreased [Unknown]
  - Abdominal pain [Unknown]
  - Defaecation urgency [Unknown]
  - Asthenia [Unknown]
  - Hypersensitivity [Recovered/Resolved]
